FAERS Safety Report 5188901-0 (Version None)
Quarter: 2006Q4

REPORT INFORMATION
  Report Type: 
  Country: None (occurrence: None)
  Receive Date: 20061221
  Receipt Date: 20061127
  Transmission Date: 20070319
  Serious: Yes (Hospitalization)
  Sender: FDA-Public Use
  Company Number: US-BOEHRINGER INGELHEIM PHARMACEUTICALS, INC.-2006-BP-13796BP

PATIENT
  Age: 68 Year
  Sex: Male

DRUGS (13)
  1. CATAPRES-TTS-1 [Suspect]
     Indication: HYPERTENSION
     Route: 061
     Dates: start: 20061029
  2. TOPROL-XL [Suspect]
  3. CLONIDINE (MYLAN) [Concomitant]
     Indication: HYPERTENSION
  4. BENICAR HCT [Concomitant]
     Indication: HYPERTENSION
  5. GLIPIZIDE [Concomitant]
     Indication: DIABETES MELLITUS
  6. VITAMIN CAP [Concomitant]
  7. ADVIL [Concomitant]
     Indication: OSTEOARTHRITIS
  8. AVANDIA [Concomitant]
     Indication: DIABETES MELLITUS
  9. FLOMAX [Concomitant]
     Indication: BENIGN PROSTATIC HYPERPLASIA
  10. VITAMIN E [Concomitant]
  11. VITAMIN B COMPLEX CAP [Concomitant]
  12. ALEVE [Concomitant]
  13. CALCIUM + D [Concomitant]

REACTIONS (3)
  - BLOOD GLUCOSE INCREASED [None]
  - DYSPNOEA [None]
  - OEDEMA PERIPHERAL [None]
